FAERS Safety Report 18891065 (Version 1)
Quarter: 2021Q1

REPORT INFORMATION
  Report Type: Report from Study
  Country: IN (occurrence: IN)
  Receive Date: 20210215
  Receipt Date: 20210215
  Transmission Date: 20210420
  Serious: Yes (Other)
  Sender: FDA-Public Use
  Company Number: IN-CIPLA LTD.-2021IN00726

PATIENT

DRUGS (1)
  1. AMLOPRES [Suspect]
     Active Substance: AMLODIPINE BESYLATE
     Indication: HYPERTENSION
     Dosage: 5 MILLIGRAM, QD (0?0?1)
     Route: 048

REACTIONS (2)
  - Spondylitis [Unknown]
  - Paralysis [Recovered/Resolved]
